FAERS Safety Report 6699546-5 (Version None)
Quarter: 2010Q2

REPORT INFORMATION
  Report Type: 
  Country: None (occurrence: None)
  Receive Date: 20100427
  Receipt Date: 20100427
  Transmission Date: 20101027
  Serious: Yes (Other)
  Sender: FDA-Public Use
  Company Number: None

PATIENT
  Age: 49 Year
  Sex: Male
  Weight: 73.4827 kg

DRUGS (1)
  1. LANTUS [Suspect]
     Dosage: 20 TO 38 UNITS PER DAY
     Dates: start: 20010517, end: 20100422

REACTIONS (1)
  - DIABETIC RETINOPATHY [None]
